FAERS Safety Report 8972303 (Version 1)
Quarter: 2012Q4

REPORT INFORMATION
  Report Type: 
  Country: AU (occurrence: AU)
  Receive Date: 20121219
  Receipt Date: 20121219
  Transmission Date: 20130627
  Serious: Yes (Death, Other)
  Sender: FDA-Public Use
  Company Number: AU-B.I. PHARMACEUTICALS,INC./RIDGEFIELD-2012-AU-01997AU

PATIENT
  Sex: Male

DRUGS (1)
  1. TRAJENTA [Suspect]

REACTIONS (2)
  - Post procedural infection [Fatal]
  - Skin ulcer [Unknown]
